FAERS Safety Report 9956860 (Version 1)
Quarter: 2014Q1

REPORT INFORMATION
  Report Type: Report from Study
  Country: US (occurrence: US)
  Receive Date: 20140304
  Receipt Date: 20140304
  Transmission Date: 20141002
  Serious: No
  Sender: FDA-Public Use
  Company Number: US-ABBVIE-13P-163-1099242-00

PATIENT
  Age: 45 Year
  Sex: Female

DRUGS (10)
  1. HUMIRA [Suspect]
     Indication: CROHN^S DISEASE
     Dates: start: 20130429
  2. PREDNISONE [Concomitant]
     Indication: CROHN^S DISEASE
  3. ASACOL [Concomitant]
     Indication: PRODUCT USED FOR UNKNOWN INDICATION
     Dosage: PILLS
  4. CONTRACEPTIVES [Concomitant]
     Indication: PRODUCT USED FOR UNKNOWN INDICATION
     Dosage: DAILY
  5. ADDERALL [Concomitant]
     Indication: PRODUCT USED FOR UNKNOWN INDICATION
     Dosage: PATIENT TAKES ONLY 40MG WHEN SHE IS AT WORK
  6. MULTIVITAMIN [Concomitant]
     Indication: PRODUCT USED FOR UNKNOWN INDICATION
     Dosage: DAILY
  7. VITAMIN C [Concomitant]
     Indication: PRODUCT USED FOR UNKNOWN INDICATION
     Dosage: DAILY
  8. PRISTIQ [Concomitant]
     Indication: DEPRESSION
  9. PRISTIQ [Concomitant]
     Indication: ANXIETY
  10. PURINETHOL [Concomitant]
     Indication: CROHN^S DISEASE

REACTIONS (3)
  - Hyperhidrosis [Not Recovered/Not Resolved]
  - Upper respiratory tract infection [Not Recovered/Not Resolved]
  - Nausea [Not Recovered/Not Resolved]
